FAERS Safety Report 9598278 (Version 1)
Quarter: 2013Q4

REPORT INFORMATION
  Report Type: Spontaneous
  Country: US (occurrence: US)
  Receive Date: 20131004
  Receipt Date: 20131004
  Transmission Date: 20140711
  Serious: No
  Sender: FDA-Public Use
  Company Number: US-AMGEN-USASP2013022884

PATIENT
  Age: 27 Year
  Sex: Female
  Weight: 71.66 kg

DRUGS (4)
  1. ENBREL [Suspect]
     Indication: PRODUCT USED FOR UNKNOWN INDICATION
     Dosage: 50 MG, 2 TIMES/WK
     Route: 058
  2. CENTRUM                            /02217401/ [Concomitant]
     Dosage: UNK
  3. NUVARING [Concomitant]
     Dosage: UNK
  4. IRON [Concomitant]
     Dosage: UNK

REACTIONS (1)
  - Drug ineffective [Unknown]
